FAERS Safety Report 9099648 (Version 1)
Quarter: 2013Q1

REPORT INFORMATION
  Report Type: Spontaneous
  Country: BR (occurrence: BR)
  Receive Date: 20130214
  Receipt Date: 20130214
  Transmission Date: 20140127
  Serious: Yes (Death, Hospitalization, Other)
  Sender: FDA-Public Use
  Company Number: BR-009507513-1302BRA006519

PATIENT
  Age: 61 Year
  Sex: Male
  Weight: 61 kg

DRUGS (2)
  1. PEG-INTRON [Suspect]
     Indication: HEPATITIS C
     Dosage: 100 MICROGRAM, QW
     Route: 058
     Dates: start: 201210
  2. RIBAVIRIN [Concomitant]
     Indication: HEPATITIS C
     Dosage: 500 MG, BID
     Route: 048
     Dates: start: 20121029

REACTIONS (2)
  - Respiratory failure [Fatal]
  - Malaise [Fatal]
